FAERS Safety Report 22132829 (Version 1)
Quarter: 2023Q1

REPORT INFORMATION
  Report Type: Spontaneous
  Country: CN (occurrence: CN)
  Receive Date: 20230323
  Receipt Date: 20230323
  Transmission Date: 20230417
  Serious: Yes (Other)
  Sender: FDA-Public Use
  Company Number: CN-BoehringerIngelheim-2023-BI-227020

PATIENT
  Age: 46 Year
  Sex: Male
  Weight: 73.000 kg

DRUGS (4)
  1. LINAGLIPTIN [Suspect]
     Active Substance: LINAGLIPTIN
     Indication: Blood glucose increased
     Route: 048
     Dates: start: 20230313, end: 20230314
  2. GLICLAZIDE [Suspect]
     Active Substance: GLICLAZIDE
     Indication: Blood glucose increased
     Route: 048
     Dates: start: 20230313, end: 20230314
  3. METFORMIN [Suspect]
     Active Substance: METFORMIN HYDROCHLORIDE
     Indication: Blood glucose increased
     Route: 048
     Dates: start: 20230313, end: 20230314
  4. ACARBOSE [Suspect]
     Active Substance: ACARBOSE
     Indication: Blood glucose increased
     Route: 048
     Dates: start: 20230313, end: 20230314

REACTIONS (3)
  - Rash [Recovering/Resolving]
  - Pruritus [Recovering/Resolving]
  - Product use issue [Unknown]

NARRATIVE: CASE EVENT DATE: 20230314
